FAERS Safety Report 9468743 (Version 1)
Quarter: 2013Q3

REPORT INFORMATION
  Report Type: Spontaneous
  Country: US (occurrence: None)
  Receive Date: 20130814
  Receipt Date: 20130814
  Transmission Date: 20140515
  Serious: Yes (Other)
  Sender: FDA-Public Use
  Company Number: HA13-247-AE

PATIENT
  Age: 51 Year
  Sex: Male
  Weight: 97.52 kg

DRUGS (13)
  1. SULFAMETHOXAZOLE / TRIMETHOPRIM [Suspect]
     Indication: INFECTION PROPHYLAXIS
     Dosage: 2 TABLETS
     Route: 048
     Dates: start: 20130716, end: 20130725
  2. ADDERALL 20 MG TABLET [Concomitant]
  3. MAG OXIDE 400 MG [Concomitant]
  4. SPIRONOLACTONE [Concomitant]
  5. SODIUM BICARBONATE [Concomitant]
  6. SUCRALFATE [Concomitant]
  7. RANEXA 500MG [Concomitant]
  8. METFORMIN [Concomitant]
  9. LORATAB [Concomitant]
  10. DALIRESP [Concomitant]
  11. NEXIUM [Concomitant]
  12. DAOLOL [Concomitant]
  13. OMEPRAZOLE [Concomitant]

REACTIONS (2)
  - Stevens-Johnson syndrome [None]
  - Lip haemorrhage [None]
